FAERS Safety Report 20843396 (Version 1)
Quarter: 2022Q2

REPORT INFORMATION
  Report Type: Spontaneous
  Country: US (occurrence: US)
  Receive Date: 20220518
  Receipt Date: 20220518
  Transmission Date: 20220720
  Serious: Yes (Hospitalization)
  Sender: FDA-Public Use
  Company Number: US-MYLANLABS-2022M1036409

PATIENT
  Age: 37 Year
  Sex: Male

DRUGS (2)
  1. HEPARIN [Suspect]
     Active Substance: HEPARIN SODIUM
     Indication: Portosplenomesenteric venous thrombosis
     Dosage: UNK, INITIAL CONSERVATIVE MANAGEMENT
     Route: 042
  2. HEPARIN [Suspect]
     Active Substance: HEPARIN SODIUM
     Indication: Portal vein thrombosis
     Dosage: UNK, 800 UNITS/H DURING PHARMACOMECHANICAL THROMBOLYSIS?.
     Route: 042

REACTIONS (1)
  - Treatment failure [Unknown]
